FAERS Safety Report 4310943-5 (Version None)
Quarter: 2004Q1

REPORT INFORMATION
  Report Type: 
  Country: None (occurrence: None)
  Receive Date: 20040302
  Receipt Date: 20040219
  Transmission Date: 20041129
  Serious: Yes (Hospitalization)
  Sender: FDA-Public Use
  Company Number: US-JNJFOC-20040204695

PATIENT
  Age: 81 Year
  Sex: Female

DRUGS (3)
  1. DURAGESIC [Suspect]
     Indication: PAIN
     Dosage: 25 UG/HR, 1 IN 72 HOUR, TRANSDERMAL
     Route: 062
     Dates: start: 20040213, end: 20040214
  2. DARVOCET (PROPACET) [Concomitant]
  3. NEURONTIN [Concomitant]

REACTIONS (2)
  - BLOOD PRESSURE INCREASED [None]
  - MALAISE [None]
